FAERS Safety Report 23138082 (Version 2)
Quarter: 2023Q4

REPORT INFORMATION
  Report Type: Spontaneous
  Country: US (occurrence: US)
  Receive Date: 20231102
  Receipt Date: 20231110
  Transmission Date: 20240110
  Serious: Yes (Other)
  Sender: FDA-Public Use
  Company Number: US-ALCON LABORATORIES-ALC2023US004803

PATIENT
  Age: 67 Year
  Sex: Male

DRUGS (2)
  1. SIMBRINZA [Suspect]
     Active Substance: BRIMONIDINE TARTRATE\BRINZOLAMIDE
     Indication: Intraocular pressure increased
     Dosage: 1 DROP, BID IN THE LEFT EYE
     Route: 047
     Dates: start: 20230816, end: 20231018
  2. Bromfenac;Moxifloxacin;Prednisolone [Concomitant]
     Indication: Product used for unknown indication
     Dosage: 1 DROP, TID IN LEFT EYE
     Route: 047

REACTIONS (1)
  - Uveitis [Not Recovered/Not Resolved]

NARRATIVE: CASE EVENT DATE: 20231018
